FAERS Safety Report 7674725-9 (Version None)
Quarter: 2011Q3

REPORT INFORMATION
  Report Type: 
  Country: None (occurrence: None)
  Receive Date: 20110810
  Receipt Date: 20110323
  Transmission Date: 20111222
  Serious: Yes (Hospitalization)
  Sender: FDA-Public Use
  Company Number: US-GLAXOSMITHKLINE-A0920604A

PATIENT
  Age: 11 Year
  Sex: Female
  Weight: 33.1 kg

DRUGS (3)
  1. ADCIRCA [Concomitant]
  2. FLOLAN [Suspect]
     Indication: PULMONARY ARTERIAL HYPERTENSION
     Route: 042
     Dates: start: 20080506
  3. FLOLAN [Suspect]
     Dosage: 59NGKM UNKNOWN
     Route: 065
     Dates: start: 20080806

REACTIONS (2)
  - SICKLE CELL ANAEMIA WITH CRISIS [None]
  - CHEST PAIN [None]
